FAERS Safety Report 23990503 (Version 2)
Quarter: 2024Q3

REPORT INFORMATION
  Report Type: Spontaneous
  Country: US (occurrence: US)
  Receive Date: 20240619
  Receipt Date: 20240723
  Transmission Date: 20241017
  Serious: No
  Sender: BRISTOL MYERS SQUIBB
  Company Number: US-BRISTOL-MYERS SQUIBB COMPANY-2024-098194

PATIENT
  Age: 88 Year
  Sex: Female

DRUGS (2)
  1. LENALIDOMIDE [Suspect]
     Active Substance: LENALIDOMIDE
     Indication: Chronic kidney disease
     Route: 048
  2. LENALIDOMIDE [Suspect]
     Active Substance: LENALIDOMIDE
     Dosage: TAKE 1 CAPSULE BY MOUTH EVERY 24 HOURS ON DAYS 1-21, FOLLOWED BY 7 DAYS OF
     Route: 048

REACTIONS (3)
  - Platelet count abnormal [Not Recovered/Not Resolved]
  - Off label use [Unknown]
  - Blood calcium increased [Recovering/Resolving]
